FAERS Safety Report 18949691 (Version 1)
Quarter: 2021Q1

REPORT INFORMATION
  Report Type: Report from Study
  Country: DO (occurrence: DO)
  Receive Date: 20210227
  Receipt Date: 20210227
  Transmission Date: 20210420
  Serious: Yes (Other)
  Sender: FDA-Public Use
  Company Number: NVSC2021DO042921

PATIENT
  Age: 67 Year
  Sex: Female

DRUGS (3)
  1. EXELON [Suspect]
     Active Substance: RIVASTIGMINE TARTRATE
     Indication: NERVOUS SYSTEM DISORDER
     Dosage: UNK (27 MG /15)
     Route: 065
     Dates: start: 20191201
  2. EXELON [Suspect]
     Active Substance: RIVASTIGMINE TARTRATE
     Dosage: UNK (9 MG/ 5)
     Route: 065
     Dates: start: 20191201
  3. EXELON [Suspect]
     Active Substance: RIVASTIGMINE TARTRATE
     Dosage: UNK (18 MG/10)
     Route: 065
     Dates: start: 20191201

REACTIONS (2)
  - Disturbance in attention [Unknown]
  - Deafness [Unknown]
